FAERS Safety Report 9329859 (Version 1)
Quarter: 2013Q2

REPORT INFORMATION
  Report Type: Spontaneous
  Country: US (occurrence: US)
  Receive Date: 20130604
  Receipt Date: 20130604
  Transmission Date: 20140414
  Serious: No
  Sender: FDA-Public Use
  Company Number: US-SANOFI-AVENTIS-2013SA004482

PATIENT
  Age: 48 Year
  Sex: Female

DRUGS (3)
  1. LANTUS SOLOSTAR [Suspect]
     Indication: TYPE 2 DIABETES MELLITUS
     Dosage: STARTED WITH 15 UNITS AND INCRESED UPTO 32 UNITS DOSE:15 UNIT(S)
     Route: 051
     Dates: start: 201212
  2. LANTUS SOLOSTAR [Suspect]
     Indication: TYPE 2 DIABETES MELLITUS
     Dosage: DOSE:32 UNIT(S)
     Route: 051
  3. SOLOSTAR [Suspect]
     Indication: TYPE 2 DIABETES MELLITUS
     Dates: start: 201212

REACTIONS (5)
  - Rash [Unknown]
  - Injection site reaction [Unknown]
  - Blister [Unknown]
  - Drug administration error [Unknown]
  - Dysgeusia [Unknown]
